FAERS Safety Report 22676787 (Version 8)
Quarter: 2023Q4

REPORT INFORMATION
  Report Type: Report from Study
  Country: US (occurrence: US)
  Receive Date: 20230706
  Receipt Date: 20231202
  Transmission Date: 20240110
  Serious: No
  Sender: FDA-Public Use
  Company Number: US-002147023-NVSC2023US150658

PATIENT
  Age: 47 Year
  Sex: Female

DRUGS (1)
  1. KESIMPTA [Suspect]
     Active Substance: OFATUMUMAB
     Indication: Relapsing multiple sclerosis
     Dosage: 20 MG, QMO
     Route: 058
     Dates: start: 20230617

REACTIONS (12)
  - Fatigue [Not Recovered/Not Resolved]
  - Myalgia [Unknown]
  - Abdominal discomfort [Unknown]
  - Blood glucose abnormal [Unknown]
  - Pain in extremity [Unknown]
  - Weight decreased [Recovered/Resolved with Sequelae]
  - Sinus disorder [Unknown]
  - Insomnia [Unknown]
  - Emotional disorder [Unknown]
  - Temperature intolerance [Unknown]
  - Headache [Unknown]
  - Chills [Unknown]

NARRATIVE: CASE EVENT DATE: 20230628
